FAERS Safety Report 5150597-1 (Version None)
Quarter: 2006Q4

REPORT INFORMATION
  Report Type: 
  Country: None (occurrence: None)
  Receive Date: 20061114
  Receipt Date: 20061106
  Transmission Date: 20070319
  Serious: Yes (Other)
  Sender: FDA-Public Use
  Company Number: DE-JNJFOC-20061101604

PATIENT
  Age: 19 Year
  Sex: Male
  Weight: 45 kg

DRUGS (10)
  1. HALDOL [Suspect]
     Route: 048
  2. HALDOL [Suspect]
     Route: 048
  3. HALDOL [Suspect]
     Indication: SCHIZOAFFECTIVE DISORDER
     Route: 048
  4. TAVOR [Concomitant]
     Route: 048
  5. TAVOR [Concomitant]
     Route: 048
  6. TAVOR [Concomitant]
     Route: 048
  7. DIAZEPAM [Concomitant]
     Route: 048
  8. DIAZEPAM [Concomitant]
     Route: 048
  9. DIAZEPAM [Concomitant]
     Route: 048
  10. DIAZEPAM [Concomitant]
     Route: 048

REACTIONS (3)
  - GRAND MAL CONVULSION [None]
  - POLYDIPSIA PSYCHOGENIC [None]
  - RHABDOMYOLYSIS [None]
